FAERS Safety Report 6271759-6 (Version None)
Quarter: 2009Q3

REPORT INFORMATION
  Report Type: 
  Country: None (occurrence: None)
  Receive Date: 20090717
  Receipt Date: 20090709
  Transmission Date: 20100115
  Serious: Yes (Other)
  Sender: FDA-Public Use
  Company Number: CA-JNJFOC-20090702789

PATIENT
  Age: 42 Year
  Sex: Male

DRUGS (14)
  1. PREZISTA [Suspect]
     Indication: HIV INFECTION
     Route: 048
  2. INTELENCE [Suspect]
     Indication: HIV INFECTION
     Route: 048
  3. RITONAVIR [Suspect]
     Indication: DRUG USE FOR UNKNOWN INDICATION
     Route: 048
  4. TRUVADA [Suspect]
  5. TRUVADA [Suspect]
     Indication: DRUG USE FOR UNKNOWN INDICATION
  6. KALETRA [Concomitant]
  7. FENTANYL-100 [Concomitant]
     Route: 062
  8. GABAPENTIN [Concomitant]
  9. LEUCOVORIN CALCIUM [Concomitant]
  10. PYRIMETHAMINE [Concomitant]
  11. MIRTAZAPINE [Concomitant]
  12. DAPSONE [Concomitant]
  13. NABILONE [Concomitant]
  14. MELOXICAM [Concomitant]

REACTIONS (1)
  - APLASTIC ANAEMIA [None]
